FAERS Safety Report 9407256 (Version 1)
Quarter: 2013Q3

REPORT INFORMATION
  Report Type: Spontaneous
  Country: US (occurrence: US)
  Receive Date: 20130718
  Receipt Date: 20130718
  Transmission Date: 20140515
  Serious: No
  Sender: FDA-Public Use
  Company Number: US-009507513-1307USA009248

PATIENT
  Age: 20 Year
  Sex: Female
  Weight: 77.98 kg

DRUGS (1)
  1. IMPLANON [Suspect]
     Indication: CONTRACEPTION
     Dosage: 1 ROD UP TO 3 YRS
     Route: 059
     Dates: start: 201103, end: 20130708

REACTIONS (3)
  - Metrorrhagia [Recovered/Resolved]
  - Amenorrhoea [Recovering/Resolving]
  - Menorrhagia [Recovering/Resolving]
